FAERS Safety Report 15748466 (Version 2)
Quarter: 2019Q2

REPORT INFORMATION
  Report Type: Report from Study
  Country: US (occurrence: US)
  Receive Date: 20181221
  Receipt Date: 20190515
  Transmission Date: 20190711
  Serious: Yes (Other)
  Sender: FDA-Public Use
  Company Number: US-ROCHE-2228924

PATIENT
  Age: 52 Year
  Sex: Male

DRUGS (2)
  1. OCREVUS [Suspect]
     Active Substance: OCRELIZUMAB
     Indication: PRODUCT USED FOR UNKNOWN INDICATION
     Dosage: ONGOING : UNKNOWN
     Route: 065
     Dates: start: 20181120
  2. OCREVUS [Suspect]
     Active Substance: OCRELIZUMAB
     Dosage: ONGOING : UNKNOWN
     Route: 065
     Dates: start: 20181207

REACTIONS (6)
  - Upper respiratory tract infection [Unknown]
  - Asthenia [Not Recovered/Not Resolved]
  - Erythema [Recovered/Resolved]
  - Drug ineffective [Unknown]
  - Palpitations [Recovered/Resolved]
  - Weight increased [Unknown]

NARRATIVE: CASE EVENT DATE: 20181120
